FAERS Safety Report 4835619-7 (Version None)
Quarter: 2005Q4

REPORT INFORMATION
  Report Type: 
  Country: None (occurrence: None)
  Receive Date: 20051121
  Receipt Date: 20051102
  Transmission Date: 20060501
  Serious: Yes (Hospitalization)
  Sender: FDA-Public Use
  Company Number: WAES 0511USA00857

PATIENT
  Age: 64 Year
  Sex: Female

DRUGS (10)
  1. ZOCOR [Suspect]
     Dosage: PO
     Route: 048
  2. ALFAROL [Concomitant]
  3. ELCITONIN [Concomitant]
  4. GASTER [Concomitant]
  5. LOBU [Concomitant]
  6. PREDONINE [Concomitant]
  7. RHEUMATREX [Concomitant]
  8. ULCERLMIN [Concomitant]
  9. VOLTAREN [Concomitant]
  10. THERAPY [Concomitant]

REACTIONS (1)
  - HERPES ZOSTER [None]
